FAERS Safety Report 9852884 (Version 1)
Quarter: 2014Q1

REPORT INFORMATION
  Report Type: Spontaneous
  Country: BR (occurrence: BR)
  Receive Date: 20140129
  Receipt Date: 20140129
  Transmission Date: 20141002
  Serious: Yes (Other)
  Sender: FDA-Public Use
  Company Number: BR-PFIZER INC-2014025779

PATIENT
  Age: 74 Year
  Sex: Male
  Weight: 73 kg

DRUGS (5)
  1. CITALOR [Suspect]
     Dosage: 20 MG, DAILY
     Route: 048
     Dates: start: 2004
  2. LIPITOR [Suspect]
     Dosage: 40 MG, UNK
  3. GLIFAGE XR [Concomitant]
     Indication: SPINAL OSTEOARTHRITIS
     Dosage: EVERY EIGHT WEEKS
     Route: 042
  4. REMICADE [Concomitant]
     Indication: SPINAL OSTEOARTHRITIS
     Dosage: UNK
  5. TECNOMET [Concomitant]
     Indication: SPINAL OSTEOARTHRITIS
     Dosage: UNK

REACTIONS (1)
  - Cardiac arrest [Unknown]
